FAERS Safety Report 6136383-4 (Version None)
Quarter: 2009Q1

REPORT INFORMATION
  Report Type: 
  Country: None (occurrence: None)
  Receive Date: 20090330
  Receipt Date: 20090317
  Transmission Date: 20090719
  Serious: No
  Sender: FDA-Public Use
  Company Number: BR-ROCHE-579470

PATIENT
  Sex: Female
  Weight: 3.1 kg

DRUGS (1)
  1. ROACUTAN [Suspect]
     Indication: ACNE
     Dosage: STRENGTH: 10-20MG/CAP
     Route: 064
     Dates: end: 20070201

REACTIONS (2)
  - NO ADVERSE EVENT [None]
  - NORMAL NEWBORN [None]
